FAERS Safety Report 9700677 (Version 2)
Quarter: 2014Q1

REPORT INFORMATION
  Report Type: Report from Study
  Country: BR (occurrence: BR)
  Receive Date: 20131121
  Receipt Date: 20140124
  Transmission Date: 20141002
  Serious: Yes (Other)
  Sender: FDA-Public Use
  Company Number: PHHY2013BR132668

PATIENT
  Age: 48 Year
  Sex: Female
  Weight: 42 kg

DRUGS (2)
  1. ACLASTA [Suspect]
     Indication: OSTEOPOROSIS
     Dosage: 5 MG, UNK
     Route: 042
     Dates: start: 2012
  2. OSCAL D                            /00944201/ [Concomitant]
     Indication: BONE DISORDER
     Dosage: 400 MG (1 TABLET), DAILY
     Route: 048
     Dates: start: 2012

REACTIONS (1)
  - Thrombosis [Recovered/Resolved]
